FAERS Safety Report 8884704 (Version 1)
Quarter: 2012Q4

REPORT INFORMATION
  Report Type: 
  Country: US (occurrence: US)
  Receive Date: 20121102
  Receipt Date: 20121102
  Transmission Date: 20130627
  Serious: Yes (Other)
  Sender: FDA-Public Use
  Company Number: US-PFIZER INC-2012266806

PATIENT
  Sex: Female

DRUGS (1)
  1. PREPARATION H [Suspect]
     Dosage: UNK

REACTIONS (1)
  - Rectal haemorrhage [Unknown]
